FAERS Safety Report 7827627-9 (Version None)
Quarter: 2011Q4

REPORT INFORMATION
  Report Type: 
  Country: None (occurrence: None)
  Receive Date: 20111020
  Receipt Date: 20111014
  Transmission Date: 20120403
  Serious: Yes (Hospitalization)
  Sender: FDA-Public Use
  Company Number: US-AMGEN-USASP2011053261

PATIENT
  Age: 83 Year
  Sex: Male

DRUGS (2)
  1. XGEVA [Suspect]
     Indication: METASTASES TO BONE
     Dosage: UNK
     Dates: start: 20110901
  2. VITAMIN D [Concomitant]
     Indication: VITAMIN D DECREASED
     Dosage: UNK

REACTIONS (2)
  - HYPOCALCAEMIA [None]
  - GOUT [None]
